FAERS Safety Report 10440871 (Version 1)
Quarter: 2014Q3

REPORT INFORMATION
  Report Type: Spontaneous
  Country: US (occurrence: None)
  Receive Date: 20140905
  Receipt Date: 20140905
  Transmission Date: 20150326
  Serious: No
  Sender: FDA-Public Use
  Company Number: None

PATIENT
  Age: 54 Year
  Sex: Female

DRUGS (1)
  1. ATORVASTATIN [Suspect]
     Active Substance: ATORVASTATIN
     Indication: BLOOD CHOLESTEROL INCREASED
     Dosage: 1 PILL  ONCE DAILY --?MONTH-LATER ON MONTH

REACTIONS (5)
  - Gait disturbance [None]
  - Wrong technique in drug usage process [None]
  - Blepharospasm [None]
  - Pain in extremity [None]
  - Anger [None]
